FAERS Safety Report 21593201 (Version 1)
Quarter: 2022Q4

REPORT INFORMATION
  Report Type: Spontaneous
  Country: US (occurrence: None)
  Receive Date: 20221111
  Receipt Date: 20221111
  Transmission Date: 20230112
  Serious: Yes (Hospitalization)
  Sender: FDA-Public Use
  Company Number: None

PATIENT
  Sex: Male
  Weight: 76.2 kg

DRUGS (26)
  1. LENALIDOMIDE [Suspect]
     Active Substance: LENALIDOMIDE
     Indication: Plasma cell myeloma
     Dosage: FREQUENCY : DAILY;?
     Route: 048
  2. ACETAMINOPHEN [Concomitant]
  3. ACYCLOVIR [Concomitant]
  4. AMLODIPINE [Concomitant]
  5. AMOXICILLIN [Concomitant]
     Active Substance: AMOXICILLIN
  6. ASPIRIN [Concomitant]
  7. CALCIUM CARBONATE [Concomitant]
  8. CENTRUM ULTRA [Concomitant]
  9. DERMAPHOR [Concomitant]
  10. DEXAMETHASONE [Concomitant]
  11. DOCUSATE [Concomitant]
  12. FENOFIBRATE AND DRIVATIVES [Concomitant]
  13. GALANTAMINE [Concomitant]
  14. ISOSORBIDE MONITRATE [Concomitant]
  15. LEVOTHYROXINE [Concomitant]
  16. LOVAZA [Concomitant]
  17. MILK OF MAGNESIA [Concomitant]
  18. NITROGLYCERIN [Concomitant]
  19. PANTOPRAZOLE [Concomitant]
  20. RISERIDONE [Concomitant]
  21. SIMVASTATIN [Concomitant]
  22. VASCEPA [Concomitant]
  23. VELCADE [Concomitant]
  24. VITAMIN D3 [Concomitant]
  25. VITAMIN E [Concomitant]
  26. XGEVA [Concomitant]

REACTIONS (2)
  - Gastric disorder [None]
  - Therapy interrupted [None]
